FAERS Safety Report 17566368 (Version 1)
Quarter: 2020Q1

REPORT INFORMATION
  Report Type: Report from Study
  Country: US (occurrence: US)
  Receive Date: 20200320
  Receipt Date: 20200320
  Transmission Date: 20200409
  Serious: Yes (Death)
  Sender: FDA-Public Use
  Company Number: US-MYLANLABS-2020M1017055

PATIENT
  Sex: Male

DRUGS (1)
  1. CLOZAPINE. [Suspect]
     Active Substance: CLOZAPINE
     Indication: MANIA
     Dosage: UNK
     Dates: start: 2019

REACTIONS (2)
  - Parkinson^s disease [Fatal]
  - Off label use [Unknown]

NARRATIVE: CASE EVENT DATE: 2019
